FAERS Safety Report 7278680-5 (Version None)
Quarter: 2011Q1

REPORT INFORMATION
  Report Type: 
  Country: None (occurrence: None)
  Receive Date: 20110207
  Receipt Date: 20110201
  Transmission Date: 20110831
  Serious: No
  Sender: FDA-Public Use
  Company Number: US-PFIZER INC-2011023502

PATIENT
  Sex: Female
  Weight: 68 kg

DRUGS (4)
  1. PREMARIN [Suspect]
     Indication: MENOPAUSE
     Dosage: UNK
     Dates: start: 20100601
  2. LODINE [Concomitant]
     Indication: ARTHRITIS
     Dosage: UNK
  3. PREVACID [Concomitant]
     Indication: GASTROOESOPHAGEAL REFLUX DISEASE
     Dosage: UNK
  4. ZOCOR [Concomitant]
     Indication: BLOOD CHOLESTEROL INCREASED
     Dosage: UNK

REACTIONS (1)
  - DRUG INEFFECTIVE [None]
